FAERS Safety Report 8938228 (Version 2)
Quarter: 2013Q1

REPORT INFORMATION
  Report Type: Spontaneous
  Country: DE (occurrence: DE)
  Receive Date: 20121130
  Receipt Date: 20130125
  Transmission Date: 20140127
  Serious: Yes (Hospitalization, Other)
  Sender: FDA-Public Use
  Company Number: DE-ELI_LILLY_AND_COMPANY-DE201211007378

PATIENT
  Age: 64 Year
  Sex: Male

DRUGS (1)
  1. BYETTA [Suspect]
     Indication: INSULIN RESISTANCE
     Dosage: UNK, UNKNOWN
     Route: 058
     Dates: start: 201003, end: 201210

REACTIONS (2)
  - Pancreatitis chronic [Recovering/Resolving]
  - Pancreatic fistula [Recovering/Resolving]
